FAERS Safety Report 4430751-4 (Version None)
Quarter: 2004Q3

REPORT INFORMATION
  Report Type: 
  Country: None (occurrence: None)
  Receive Date: 20040818
  Receipt Date: 20040810
  Transmission Date: 20050211
  Serious: Yes (Life-Threatening, Hospitalization)
  Sender: FDA-Public Use
  Company Number: STA-AE-04-MTX-279

PATIENT
  Age: 56 Year
  Sex: Male

DRUGS (2)
  1. METHOTREXATE [Suspect]
     Indication: RHEUMATOID ARTHRITIS
     Dosage: 25 MG 1X PER 1 DAY, ORAL
     Route: 048
     Dates: end: 20040628
  2. ENBREL [Suspect]
     Dosage: 12 MG, 2X PER 1 WK, SC  : 25 MG 2X PER 1 WK, SC
     Route: 058
     Dates: start: 20031216, end: 20040628

REACTIONS (2)
  - ANGINA UNSTABLE [None]
  - CORONARY ARTERY DISEASE [None]
